FAERS Safety Report 7711469 (Version 2)
Quarter: 2013Q1

REPORT INFORMATION
  Report Type: Spontaneous
  Country: US (occurrence: None)
  Receive Date: 20101117
  Receipt Date: 20130327
  Transmission Date: 20140127
  Serious: Yes (Death, Hospitalization)
  Sender: FDA-Public Use
  Company Number: AUR-APL-2010-02726

PATIENT
  Age: 58 Year
  Sex: Female

DRUGS (5)
  1. FLUOXETINE [Suspect]
     Indication: DEPRESSION
  2. ESCITALOPRAM OXALATE [Suspect]
     Indication: DEPRESSION
  3. TRAZODONE HYDROCHLORIDE [Suspect]
     Indication: DEPRESSION
  4. BUSPIRONE [Concomitant]
  5. TEMAZEPAM [Concomitant]

REACTIONS (10)
  - Cardiac arrest [None]
  - Coma [None]
  - Malaise [None]
  - Fall [None]
  - Apnoea [None]
  - Ventricular fibrillation [None]
  - Sinus tachycardia [None]
  - Torsade de pointes [None]
  - Neurological decompensation [None]
  - Electrocardiogram QT prolonged [None]
